FAERS Safety Report 4865301-1 (Version None)
Quarter: 2005Q4

REPORT INFORMATION
  Report Type: 
  Country: None (occurrence: None)
  Receive Date: 20051223
  Receipt Date: 20051102
  Transmission Date: 20060501
  Serious: Yes (Hospitalization, Other)
  Sender: FDA-Public Use
  Company Number: 2005SE06282

PATIENT
  Age: 24634 Day
  Sex: Female

DRUGS (7)
  1. BLOPRESS TABLETS 8 [Suspect]
     Indication: HYPERTENSION
     Route: 048
     Dates: start: 20040601, end: 20050913
  2. BLOPRESS TABLETS 8 [Suspect]
     Route: 048
  3. LIPITOR [Suspect]
     Indication: HYPERLIPIDAEMIA
     Route: 048
     Dates: start: 20041025, end: 20050913
  4. CONIEL [Concomitant]
     Indication: HYPERTENSION
     Route: 048
  5. GASTER D [Concomitant]
     Indication: GASTRITIS
     Route: 048
     Dates: start: 20040622
  6. DAIKENTYUTO [Concomitant]
     Indication: CONSTIPATION
     Route: 048
     Dates: start: 20040724
  7. MEVALOTIN [Concomitant]
     Indication: HYPERLIPIDAEMIA
     Route: 048
     Dates: end: 20041024

REACTIONS (2)
  - HYPOKALAEMIA [None]
  - RHABDOMYOLYSIS [None]
